FAERS Safety Report 7037812-4 (Version None)
Quarter: 2010Q4

REPORT INFORMATION
  Report Type: 
  Country: None (occurrence: None)
  Receive Date: 20101011
  Receipt Date: 20100930
  Transmission Date: 20110411
  Serious: Yes (Hospitalization)
  Sender: FDA-Public Use
  Company Number: JP-ROCHE-723367

PATIENT
  Sex: Female
  Weight: 47 kg

DRUGS (3)
  1. AVASTIN [Suspect]
     Indication: LUNG ADENOCARCINOMA
     Route: 041
     Dates: start: 20100809, end: 20100809
  2. CARBOPLATIN [Suspect]
     Indication: LUNG ADENOCARCINOMA
     Dosage: DOSAGE IS UNCERTAIN
     Route: 042
     Dates: start: 20100809, end: 20100809
  3. PACLITAXEL [Suspect]
     Indication: LUNG ADENOCARCINOMA
     Dosage: AUC6
     Route: 041
     Dates: start: 20100809, end: 20100809

REACTIONS (3)
  - ERYTHEMA MULTIFORME [None]
  - FATIGUE [None]
  - NEUTROPHIL COUNT DECREASED [None]
